FAERS Safety Report 20201061 (Version 1)
Quarter: 2021Q4

REPORT INFORMATION
  Report Type: Spontaneous
  Country: US (occurrence: US)
  Receive Date: 20211217
  Receipt Date: 20211217
  Transmission Date: 20220303
  Serious: No
  Sender: FDA-Public Use
  Company Number: US-BRISTOL-MYERS SQUIBB COMPANY-BMS-2021-137187

PATIENT
  Age: 23 Year
  Sex: Male

DRUGS (3)
  1. SPRYCEL [Suspect]
     Active Substance: DASATINIB
     Indication: Leukaemia
     Dosage: 50 MILLIGRAM
     Route: 048
     Dates: start: 202110
  2. SPRYCEL [Suspect]
     Active Substance: DASATINIB
     Dosage: 20 MILLIGRAM
     Route: 048
  3. SPRYCEL [Suspect]
     Active Substance: DASATINIB
     Dosage: 50 MILLIGRAM
     Route: 048

REACTIONS (1)
  - Platelet count decreased [Recovered/Resolved]
